FAERS Safety Report 7671751-0 (Version None)
Quarter: 2011Q3

REPORT INFORMATION
  Report Type: 
  Country: None (occurrence: None)
  Receive Date: 20110809
  Receipt Date: 20110726
  Transmission Date: 20111222
  Serious: Yes (Other)
  Sender: FDA-Public Use
  Company Number: US-ROCHE-521769

PATIENT
  Sex: Female
  Weight: 136.1 kg

DRUGS (12)
  1. ACCUTANE [Suspect]
     Route: 048
     Dates: start: 20030212
  2. ACCUTANE [Suspect]
     Route: 048
     Dates: start: 20030326
  3. ACCUTANE [Suspect]
     Route: 048
     Dates: start: 20021231
  4. ACCUTANE [Suspect]
     Route: 048
     Dates: start: 20030312
  5. ACCUTANE [Suspect]
     Route: 048
     Dates: start: 20030521, end: 20030611
  6. ACCUTANE [Suspect]
     Route: 048
     Dates: start: 20030430
  7. ORTHO TRI-CYCLEN [Concomitant]
  8. ACCUTANE [Suspect]
     Route: 048
     Dates: start: 20021204
  9. COLCHICINE [Concomitant]
  10. ACCUTANE [Suspect]
     Route: 048
     Dates: start: 20030122
  11. ACETAMINOPHEN W/ PROPOXYPHENE HCL [Concomitant]
  12. CIPROFLOXACIN HCL [Concomitant]

REACTIONS (19)
  - COLITIS ULCERATIVE [None]
  - ARTHRALGIA [None]
  - FRACTURE [None]
  - ACNE [None]
  - IRRITABLE BOWEL SYNDROME [None]
  - CERVICAL DYSPLASIA [None]
  - COLITIS [None]
  - SUICIDAL IDEATION [None]
  - STITCH ABSCESS [None]
  - INTESTINAL OBSTRUCTION [None]
  - CYST [None]
  - DEPRESSION [None]
  - STRESS [None]
  - LIP DRY [None]
  - ILEITIS [None]
  - ANXIETY [None]
  - INFLAMMATORY BOWEL DISEASE [None]
  - CROHN'S DISEASE [None]
  - EPISTAXIS [None]
